FAERS Safety Report 17601129 (Version 2)
Quarter: 2020Q2

REPORT INFORMATION
  Report Type: Spontaneous
  Country: US (occurrence: US)
  Receive Date: 20200331
  Receipt Date: 20200430
  Transmission Date: 20200713
  Serious: No
  Sender: FDA-Public Use
  Company Number: US-DRREDDYS-USA/USA/20/0121006

PATIENT
  Sex: Male

DRUGS (1)
  1. TADALAFIL TABLETS [Suspect]
     Active Substance: TADALAFIL
     Route: 048

REACTIONS (3)
  - Drug ineffective [Unknown]
  - Product quality issue [Unknown]
  - Product taste abnormal [Unknown]
